FAERS Safety Report 6581624-2 (Version None)
Quarter: 2010Q1

REPORT INFORMATION
  Report Type: 
  Country: None (occurrence: None)
  Receive Date: 20100215
  Receipt Date: 20100203
  Transmission Date: 20100710
  Serious: Yes (Other)
  Sender: FDA-Public Use
  Company Number: US-AMGEN-QUU390417

PATIENT
  Sex: Male

DRUGS (4)
  1. SENSIPAR [Suspect]
     Indication: HYPERPARATHYROIDISM SECONDARY
     Dates: start: 20100129
  2. LISINOPRIL [Concomitant]
  3. FUROSEMIDE [Concomitant]
  4. ALLOPURINOL [Concomitant]

REACTIONS (2)
  - FATIGUE [None]
  - INCORRECT DOSE ADMINISTERED [None]
